FAERS Safety Report 5122281-1 (Version None)
Quarter: 2006Q4

REPORT INFORMATION
  Report Type: 
  Country: None (occurrence: None)
  Receive Date: 20061003
  Receipt Date: 20060928
  Transmission Date: 20070319
  Serious: Yes (Death, Other)
  Sender: FDA-Public Use
  Company Number: 163-20785-06091192

PATIENT
  Age: 89 Year
  Sex: Female

DRUGS (1)
  1. THALOMID [Suspect]
     Indication: MULTIPLE MYELOMA
     Dosage: 50 MG, 1 IN 1 D, ORAL
     Route: 048
     Dates: start: 20060517, end: 20060801

REACTIONS (5)
  - FALL [None]
  - MYOCARDIAL INFARCTION [None]
  - OSTEOPOROSIS [None]
  - SPINAL FRACTURE [None]
  - THROMBOSIS [None]
